FAERS Safety Report 16587605 (Version 1)
Quarter: 2019Q3

REPORT INFORMATION
  Report Type: Spontaneous
  Country: US (occurrence: US)
  Receive Date: 20190717
  Receipt Date: 20190717
  Transmission Date: 20191004
  Serious: Yes (Hospitalization, Other)
  Sender: FDA-Public Use
  Company Number: US-ALNYLAM PHARMACEUTICALS, INC.-ALN-2019-000507

PATIENT
  Age: 78 Year
  Sex: Male

DRUGS (1)
  1. ONPATTRO [Suspect]
     Active Substance: PATISIRAN SODIUM
     Indication: HEREDITARY NEUROPATHIC AMYLOIDOSIS
     Route: 042

REACTIONS (5)
  - Intentional dose omission [Unknown]
  - Peripheral swelling [Unknown]
  - Dyspnoea [Unknown]
  - Muscular weakness [Unknown]
  - Sepsis [Unknown]

NARRATIVE: CASE EVENT DATE: 20190630
